FAERS Safety Report 5930391-1 (Version None)
Quarter: 2008Q4

REPORT INFORMATION
  Report Type: 
  Country: None (occurrence: None)
  Receive Date: 20081022
  Receipt Date: 20081009
  Transmission Date: 20090506
  Serious: No
  Sender: FDA-Public Use
  Company Number: US024841

PATIENT
  Sex: Male

DRUGS (3)
  1. FENTORA [Suspect]
     Indication: BACK PAIN
     Dosage: 200 UG QD BUCCAL
     Route: 002
     Dates: start: 20080701
  2. ACTIQ [Suspect]
     Indication: BACK PAIN
     Dosage: 400 UG 1/2 A LOZENGE AS NEEDED QID BUCCAL
     Route: 002
     Dates: start: 20080801
  3. OPANA [Suspect]
     Indication: BACK PAIN
     Dosage: 20 MG TID
     Dates: start: 20080801

REACTIONS (2)
  - DRUG PRESCRIBING ERROR [None]
  - MEDICATION ERROR [None]
